FAERS Safety Report 6876847-9 (Version None)
Quarter: 2010Q2

REPORT INFORMATION
  Report Type: 
  Country: None (occurrence: None)
  Receive Date: 20100616
  Receipt Date: 20100319
  Transmission Date: 20101027
  Serious: No
  Sender: FDA-Public Use
  Company Number: DSA_42831_2010

PATIENT
  Sex: Female

DRUGS (8)
  1. XENAZINE [Suspect]
     Indication: HUNTINGTON'S CHOREA
     Dosage: 12.5 MG TID ORAL, 12.5 MG BID ORAL
     Route: 048
     Dates: start: 20100129
  2. EFFEXOR [Concomitant]
  3. CELEXA [Concomitant]
  4. CLONAZEPAM [Concomitant]
  5. SYNTHROID [Concomitant]
  6. FOSAMAX [Concomitant]
  7. MULTIPLE VITAMIN [Concomitant]
  8. CALCIUM [Concomitant]

REACTIONS (3)
  - APATHY [None]
  - DEPRESSION [None]
  - FATIGUE [None]
